FAERS Safety Report 5281229-X (Version None)
Quarter: 2007Q1

REPORT INFORMATION
  Report Type: 
  Country: None (occurrence: None)
  Receive Date: 20070323
  Receipt Date: 20070313
  Transmission Date: 20070707
  Serious: Yes (Other)
  Sender: FDA-Public Use
  Company Number: 2007JP001057

PATIENT
  Age: 62 Year
  Sex: Male

DRUGS (1)
  1. VESICARE [Suspect]
     Dosage: 5 MG, D, ORAL
     Route: 048
     Dates: start: 20061025, end: 20061121

REACTIONS (1)
  - RASH [None]
